FAERS Safety Report 7627093-2 (Version None)
Quarter: 2011Q3

REPORT INFORMATION
  Report Type: 
  Country: None (occurrence: None)
  Receive Date: 20110714
  Receipt Date: 20110630
  Transmission Date: 20111222
  Serious: Yes (Hospitalization)
  Sender: FDA-Public Use
  Company Number: 1000022028

PATIENT
  Age: 43 Year
  Sex: Female

DRUGS (2)
  1. ESCITALOPRAM OXALATE [Suspect]
     Indication: INTENTIONAL OVERDOSE
     Dosage: (200 MG,ONCE), ORAL
     Route: 048
     Dates: start: 20110311, end: 20110311
  2. ETHANOL (ETHANOL) [Suspect]
     Indication: INTENTIONAL OVERDOSE
     Dates: start: 20110311, end: 20110311

REACTIONS (6)
  - TOXICITY TO VARIOUS AGENTS [None]
  - CARDIAC FAILURE [None]
  - ACIDOSIS [None]
  - ALCOHOL POISONING [None]
  - SYNCOPE [None]
  - SOMNOLENCE [None]
